FAERS Safety Report 7823167 (Version 3)
Quarter: 2013Q1

REPORT INFORMATION
  Report Type: Report from Study
  Country: DE (occurrence: DE)
  Receive Date: 20110223
  Receipt Date: 20130221
  Transmission Date: 20140127
  Serious: Yes (Life-Threatening, Hospitalization)
  Sender: FDA-Public Use
  Company Number: DE-SANOFI-AVENTIS-2010SA076573

PATIENT
  Age: 62 Year
  Sex: Male
  Weight: 90 kg

DRUGS (5)
  1. ELOXATIN [Suspect]
     Indication: RECTAL CANCER
     Route: 042
     Dates: start: 20101122, end: 20101122
  2. ELOXATIN [Suspect]
     Indication: RECTAL CANCER
     Dosage: D1, 8, 15, 22, 29
     Route: 042
     Dates: start: 20101212, end: 20101213
  3. XELODA [Suspect]
     Indication: RECTAL CANCER
     Dosage: 825 MG/M2 BID D1-33 W/O WEEKENDS + OPTIONAL BOOST.
     Route: 048
     Dates: start: 20101122, end: 20101213
  4. THERAPEUTIC RADIOPHARMACEUTICALS [Suspect]
     Indication: RECTAL CANCER
     Dosage: 45 GY TOTAL DOSE, 1.8 GY D1-33 W/O WEEKENDS + OPTIONAL BOOST
     Dates: start: 20101122, end: 20101214
  5. OPIUM TINCTURE [Concomitant]
     Indication: DIARRHOEA
     Route: 048
     Dates: start: 20101215, end: 20101219

REACTIONS (3)
  - Hypovolaemic shock [Recovered/Resolved with Sequelae]
  - Ileus paralytic [Recovered/Resolved with Sequelae]
  - Renal failure acute [Unknown]
